FAERS Safety Report 20213599 (Version 1)
Quarter: 2021Q4

REPORT INFORMATION
  Report Type: Spontaneous
  Country: US (occurrence: None)
  Receive Date: 20211221
  Receipt Date: 20211221
  Transmission Date: 20220304
  Serious: Yes (Hospitalization)
  Sender: FDA-Public Use
  Company Number: None

PATIENT
  Sex: Female

DRUGS (8)
  1. HUMIRA [Suspect]
     Active Substance: ADALIMUMAB
     Indication: Colitis ulcerative
     Dosage: OTHER QUANTITY : 80 MG/0.8ML;?FREQUENCY : EVERY OTHER WEEK;?
     Route: 058
     Dates: start: 20211221
  2. HUMIRA [Suspect]
     Active Substance: ADALIMUMAB
     Dosage: OTHER QUANTITY : 1 PEN (80MG);?FREQUENCY : EVERY OTHER WEEK;?
     Route: 058
  3. FOLIC ACID [Concomitant]
     Active Substance: FOLIC ACID
  4. HYDROCORT CRE [Concomitant]
  5. HYDROCORTISO CRE [Concomitant]
  6. MESALAMINE [Concomitant]
     Active Substance: MESALAMINE
  7. OMEPRAZOLE [Concomitant]
     Active Substance: OMEPRAZOLE
  8. PREDNISONE [Concomitant]
     Active Substance: PREDNISONE

REACTIONS (2)
  - Colitis ulcerative [None]
  - Disease complication [None]
